FAERS Safety Report 13065528 (Version 3)
Quarter: 2017Q1

REPORT INFORMATION
  Report Type: Spontaneous
  Country: JP (occurrence: JP)
  Receive Date: 20161227
  Receipt Date: 20170111
  Transmission Date: 20170428
  Serious: Yes (Hospitalization)
  Sender: FDA-Public Use
  Company Number: JP-ASTRAZENECA-2016SF34953

PATIENT
  Age: 32773 Day
  Sex: Female
  Weight: 37 kg

DRUGS (6)
  1. TARCEVA [Suspect]
     Active Substance: ERLOTINIB HYDROCHLORIDE
     Indication: ILL-DEFINED DISORDER
     Route: 048
     Dates: start: 20161126, end: 20161212
  2. IRESSA [Suspect]
     Active Substance: GEFITINIB
     Indication: ILL-DEFINED DISORDER
     Route: 048
     Dates: start: 20161017, end: 20161114
  3. TARCEVA [Suspect]
     Active Substance: ERLOTINIB HYDROCHLORIDE
     Indication: ILL-DEFINED DISORDER
     Route: 048
     Dates: start: 20161126, end: 20161212
  4. FERROMIA [Suspect]
     Active Substance: FERROUS CITRATE
     Indication: IRON DEFICIENCY ANAEMIA
     Route: 048
     Dates: start: 20150224
  5. IRESSA [Suspect]
     Active Substance: GEFITINIB
     Indication: LUNG NEOPLASM MALIGNANT
     Route: 048
     Dates: start: 20161017, end: 20161114
  6. CINAL [Suspect]
     Active Substance: ASCORBIC ACID\CALCIUM PANTOTHENATE
     Indication: IRON DEFICIENCY ANAEMIA
     Route: 048
     Dates: start: 20150224

REACTIONS (1)
  - Anaemia [Recovering/Resolving]

NARRATIVE: CASE EVENT DATE: 20161114
